FAERS Safety Report 12592857 (Version 1)
Quarter: 2016Q3

REPORT INFORMATION
  Report Type: Report from Study
  Country: JP (occurrence: JP)
  Receive Date: 20160726
  Receipt Date: 20160726
  Transmission Date: 20161109
  Serious: Yes (Death)
  Sender: FDA-Public Use
  Company Number: JP-ASTELLAS-2007JP005468

PATIENT
  Age: 37 Year
  Sex: Male

DRUGS (11)
  1. INTERFERON BETA NOS [Concomitant]
     Active Substance: INTERFERON BETA
     Indication: HEPATITIS CHOLESTATIC
     Dosage: 6 MIU, ONCE DAILY
     Route: 065
     Dates: start: 2006
  2. PEGINTERFERON ALFA-2B [Concomitant]
     Active Substance: PEGINTERFERON ALFA-2B
     Indication: ANTIVIRAL TREATMENT
     Route: 065
     Dates: start: 200506
  3. INTERFERON ALFA-2A [Concomitant]
     Active Substance: INTERFERON ALFA-2A
     Indication: HEPATITIS CHOLESTATIC
     Dosage: 10 MIU, ONCE DAILY
     Route: 065
     Dates: start: 2006
  4. CYCLOSPORIN [Concomitant]
     Active Substance: CYCLOSPORINE
     Indication: PRODUCT USED FOR UNKNOWN INDICATION
     Dosage: UNK UNK, UNKNOWN FREQ.
     Route: 065
     Dates: start: 2006
  5. RIBAVIRIN. [Concomitant]
     Active Substance: RIBAVIRIN
     Indication: ANTIVIRAL TREATMENT
     Route: 065
     Dates: start: 200506
  6. RIBAVIRIN. [Concomitant]
     Active Substance: RIBAVIRIN
     Dosage: 200-800 MG, ONCE DAILY
     Route: 065
     Dates: start: 2006, end: 2006
  7. PEGINTERFERON ALFA-2A [Concomitant]
     Active Substance: PEGINTERFERON ALFA-2A
     Indication: HEPATITIS CHOLESTATIC
  8. RIBAVIRIN. [Concomitant]
     Active Substance: RIBAVIRIN
     Route: 065
     Dates: start: 2006, end: 2006
  9. RIBAVIRIN. [Concomitant]
     Active Substance: RIBAVIRIN
     Route: 065
     Dates: start: 2006, end: 2006
  10. PEGINTERFERON ALFA-2B [Concomitant]
     Active Substance: PEGINTERFERON ALFA-2B
     Route: 065
     Dates: start: 2006
  11. TACROLIMUS. [Suspect]
     Active Substance: TACROLIMUS
     Indication: IMMUNOSUPPRESSANT DRUG THERAPY
     Dosage: UNK UNK, UNKNOWN FREQ.
     Route: 065
     Dates: start: 2005, end: 2006

REACTIONS (3)
  - Hepatitis cholestatic [Fatal]
  - Anaemia [Unknown]
  - Hepatitis C [Fatal]

NARRATIVE: CASE EVENT DATE: 200507
